FAERS Safety Report 13433928 (Version 1)
Quarter: 2017Q2

REPORT INFORMATION
  Report Type: Spontaneous
  Country: ZA (occurrence: ZA)
  Receive Date: 20170412
  Receipt Date: 20170412
  Transmission Date: 20170830
  Serious: Yes (Other)
  Sender: FDA-Public Use
  Company Number: ZA-MYLANLABS-2017M1021964

PATIENT

DRUGS (12)
  1. ADVANTAN FATTY [Concomitant]
     Indication: SWELLING
     Dosage: 1 MG, QD
  2. NOVOMIX FLEXPEN [Suspect]
     Active Substance: INSULIN ASPART
     Indication: BLOOD INSULIN
     Dosage: 15 UT, BID
  3. ADVANTAN FATTY [Concomitant]
     Indication: PRURITUS
  4. CORDARONE [Concomitant]
     Active Substance: AMIODARONE HYDROCHLORIDE
     Indication: ARRHYTHMIA
     Dosage: 100 MG, QD
  5. MYLAN METFORMIN 850 MG [Suspect]
     Active Substance: METFORMIN HYDROCHLORIDE
     Indication: DIABETES MELLITUS
     Dosage: 850 MG, UNK
     Dates: start: 201612
  6. GLUCOPHAGE FORTE [Suspect]
     Active Substance: METFORMIN HYDROCHLORIDE
     Indication: DIABETES MELLITUS
     Dosage: 850 MG, BID
     Dates: start: 1999
  7. ASPEN WARFARIN SODIUM [Concomitant]
     Indication: THROMBOSIS
     Dosage: 5 MG, QD
  8. CARLOC [Concomitant]
     Active Substance: CARVEDILOL
     Indication: HYPERTENSION
     Dosage: 25 MG, QD
  9. BAYER ASPIRIN CARDIO [Concomitant]
     Active Substance: ASPIRIN
     Indication: PRODUCT USED FOR UNKNOWN INDICATION
     Dosage: 100 MG, QD
  10. PURESIS [Concomitant]
     Active Substance: FUROSEMIDE
     Indication: POLYURIA
     Dosage: 40 MG, QD
  11. ASPAVOR [Concomitant]
     Active Substance: ATORVASTATIN
     Indication: BLOOD CHOLESTEROL
     Dosage: 10 MG, HS
  12. RAMPIL [Concomitant]
     Active Substance: RAMIPRIL
     Indication: HYPERTENSION
     Dosage: 10 MG, QD

REACTIONS (3)
  - Product substitution issue [Unknown]
  - Blood glucose increased [Unknown]
  - Malaise [Unknown]
